FAERS Safety Report 23391869 (Version 4)
Quarter: 2024Q1

REPORT INFORMATION
  Report Type: Spontaneous
  Country: US (occurrence: US)
  Receive Date: 20240111
  Receipt Date: 20240205
  Transmission Date: 20240409
  Serious: Yes (Hospitalization)
  Sender: FDA-Public Use
  Company Number: US-AMGEN-USASP2024004534

PATIENT
  Age: 76 Year
  Sex: Female

DRUGS (1)
  1. REPATHA [Suspect]
     Active Substance: EVOLOCUMAB
     Indication: Blood cholesterol increased
     Dosage: 420 MILLIGRAM/3.5 ML, QMO
     Route: 065
     Dates: start: 202211

REACTIONS (5)
  - Cerebrovascular accident [Recovered/Resolved]
  - Accidental exposure to product [Unknown]
  - Feeling abnormal [Unknown]
  - Amnesia [Unknown]
  - Dizziness [Unknown]

NARRATIVE: CASE EVENT DATE: 20230830
